FAERS Safety Report 21338472 (Version 2)
Quarter: 2022Q4

REPORT INFORMATION
  Report Type: Spontaneous
  Country: US (occurrence: US)
  Receive Date: 20220915
  Receipt Date: 20221001
  Transmission Date: 20230112
  Serious: Yes (Hospitalization)
  Sender: FDA-Public Use
  Company Number: US-TEVA-2022-US-2071852

PATIENT
  Age: 48 Year
  Sex: Male

DRUGS (4)
  1. FLUOROURACIL [Suspect]
     Active Substance: FLUOROURACIL
     Indication: Colon cancer
     Dosage: RECEIVED 10 ROUNDS; FOLFIRI REGIMEN
     Route: 050
  2. IRINOTECAN [Suspect]
     Active Substance: IRINOTECAN
     Indication: Colon cancer
     Dosage: RECEIVED 10 ROUNDS; FOLFIRI REGIMEN
     Route: 050
  3. AVASTIN [Suspect]
     Active Substance: BEVACIZUMAB
     Indication: Colon cancer
     Dosage: RECEIVED 10 ROUNDS
     Route: 050
  4. LEUCOVORIN [Suspect]
     Active Substance: LEUCOVORIN
     Indication: Colon cancer
     Dosage: RECEIVED 10 ROUNDS; FOLFIRI REGIMEN
     Route: 065

REACTIONS (8)
  - Chest discomfort [Unknown]
  - Abdominal pain upper [Unknown]
  - Administration site extravasation [Unknown]
  - Wrong technique in product usage process [Unknown]
  - Erosive oesophagitis [Unknown]
  - Administration site erosion [Unknown]
  - Oesophagobronchial fistula [Unknown]
  - Pneumonia aspiration [Unknown]
